FAERS Safety Report 13689792 (Version 3)
Quarter: 2017Q3

REPORT INFORMATION
  Report Type: Report from Study
  Country: US (occurrence: US)
  Receive Date: 20170626
  Receipt Date: 20170811
  Transmission Date: 20171127
  Serious: Yes (Hospitalization, Other)
  Sender: FDA-Public Use
  Company Number: US-PFIZER INC-2017186108

PATIENT
  Age: 78 Year
  Sex: Female

DRUGS (3)
  1. IBRANCE [Suspect]
     Active Substance: PALBOCICLIB
     Dosage: 125 MG, CYCLIC (DAILY/21 DAYS ON AND 7 DAYS OFF) [ONE DOSE]
     Route: 048
     Dates: start: 20170707, end: 20170708
  2. IBRANCE [Suspect]
     Active Substance: PALBOCICLIB
     Indication: BREAST CANCER METASTATIC
     Dosage: 125 MG, CYCLIC (DAILY/21 DAYS ON AND 7 DAYS OFF)
     Route: 048
     Dates: start: 20170424, end: 20170531
  3. IBRANCE [Suspect]
     Active Substance: PALBOCICLIB
     Dosage: 100 MG, CYCLIC (DAILY/21 DAYS ON AND 7 DAYS OFF)
     Route: 048
     Dates: start: 20170726

REACTIONS (19)
  - Pharyngeal inflammation [Unknown]
  - Oesophagitis [Unknown]
  - Asthenia [Not Recovered/Not Resolved]
  - Musculoskeletal chest pain [Not Recovered/Not Resolved]
  - Nausea [Not Recovered/Not Resolved]
  - Condition aggravated [Not Recovered/Not Resolved]
  - Depression [Unknown]
  - White blood cell count decreased [Recovering/Resolving]
  - Atrial fibrillation [Unknown]
  - Back pain [Not Recovered/Not Resolved]
  - Panic attack [Unknown]
  - Constipation [Unknown]
  - Diarrhoea [Not Recovered/Not Resolved]
  - Vomiting [Not Recovered/Not Resolved]
  - Pneumonia [Unknown]
  - Decreased appetite [Recovering/Resolving]
  - Fatigue [Not Recovered/Not Resolved]
  - Dysphagia [Unknown]
  - Anxiety [Unknown]
